FAERS Safety Report 19746105 (Version 1)
Quarter: 2021Q3

REPORT INFORMATION
  Report Type: Spontaneous
  Country: DK (occurrence: DK)
  Receive Date: 20210825
  Receipt Date: 20210825
  Transmission Date: 20211014
  Serious: Yes (Other)
  Sender: FDA-Public Use
  Company Number: DK-BAUSCH-BL-2021-028110

PATIENT
  Age: 37 Year
  Sex: Female

DRUGS (1)
  1. VENLAFAXINE [Suspect]
     Active Substance: VENLAFAXINE HYDROCHLORIDE
     Indication: DEPRESSION
     Route: 048
     Dates: start: 201301

REACTIONS (2)
  - Maternal exposure during pregnancy [Recovered/Resolved]
  - Foetal death [Not Recovered/Not Resolved]

NARRATIVE: CASE EVENT DATE: 202107
